FAERS Safety Report 8958561 (Version 1)
Quarter: 2012Q4

REPORT INFORMATION
  Report Type: Spontaneous
  Country: US (occurrence: None)
  Receive Date: 20121205
  Receipt Date: 20121205
  Transmission Date: 20130627
  Serious: Yes (Death)
  Sender: FDA-Public Use
  Company Number: None

PATIENT
  Age: 85 Year
  Sex: Female
  Weight: 73 kg

DRUGS (2)
  1. WARFARIN [Suspect]
     Indication: ATRIAL FIBRILLATION
     Route: 048
     Dates: start: 20121124, end: 20121125
  2. WARFARIN [Suspect]
     Indication: TIA
     Route: 048
     Dates: start: 20121124, end: 20121125

REACTIONS (2)
  - Haemorrhagic stroke [None]
  - Hypotension [None]
